FAERS Safety Report 8830651 (Version 4)
Quarter: 2013Q1

REPORT INFORMATION
  Report Type: Report from Study
  Country: JP (occurrence: JP)
  Receive Date: 20121009
  Receipt Date: 20130213
  Transmission Date: 20140127
  Serious: Yes (Other)
  Sender: FDA-Public Use
  Company Number: JP-JNJFOC-20121004450

PATIENT
  Age: 72 Year
  Sex: Female
  Weight: 49 kg

DRUGS (12)
  1. REMINYL [Suspect]
     Indication: DEMENTIA ALZHEIMER^S TYPE
     Route: 048
     Dates: start: 20120330, end: 20120413
  2. REMINYL [Suspect]
     Indication: DEMENTIA ALZHEIMER^S TYPE
     Route: 048
     Dates: start: 20120414
  3. SEROQUEL [Suspect]
     Indication: DELUSION
     Route: 048
     Dates: start: 20120512, end: 20120525
  4. SEROQUEL [Suspect]
     Indication: DELUSION
     Route: 048
     Dates: start: 20120526, end: 20121022
  5. RISPERDAL [Concomitant]
     Indication: PRODUCT USED FOR UNKNOWN INDICATION
     Route: 048
     Dates: start: 20121023, end: 20121123
  6. RISPERDAL [Concomitant]
     Indication: PRODUCT USED FOR UNKNOWN INDICATION
     Route: 048
     Dates: start: 20121124
  7. ROHYPNOL [Concomitant]
     Indication: INSOMNIA
     Route: 048
  8. GOODMIN [Concomitant]
     Indication: INSOMNIA
     Route: 048
  9. LUNESTA [Concomitant]
     Indication: INSOMNIA
     Route: 048
     Dates: start: 20120818, end: 20121013
  10. LEXOTAN [Concomitant]
     Indication: DEPRESSION
     Route: 048
  11. CYMBALTA [Concomitant]
     Indication: DEPRESSION
     Route: 048
  12. TSUMARA SHAKUYAKUKANZOTO [Concomitant]
     Indication: MUSCLE SPASMS
     Route: 048
     Dates: start: 20121208

REACTIONS (3)
  - Delusion [Recovering/Resolving]
  - Dementia Alzheimer^s type [Unknown]
  - Hyperglycaemia [Unknown]
